FAERS Safety Report 6087578-X (Version None)
Quarter: 2009Q1

REPORT INFORMATION
  Report Type: 
  Country: None (occurrence: None)
  Receive Date: 20090223
  Receipt Date: 20090210
  Transmission Date: 20090719
  Serious: Yes (Other)
  Sender: FDA-Public Use
  Company Number: CH-NOVOPROD-283717

PATIENT
  Age: 52 Year
  Sex: Male
  Weight: 78 kg

DRUGS (6)
  1. NOVORAPID FLEXPEN [Suspect]
     Indication: INSULIN-REQUIRING TYPE 2 DIABETES MELLITUS
     Dosage: 5+8+8 U, QD
  2. NOVORAPID FLEXPEN [Suspect]
  3. LANTUS [Concomitant]
     Dosage: 30 UNK, QD IN THE EVENING
  4. GLUCOPHAGE [Concomitant]
  5. COAPROVEL 300/12.5 [Concomitant]
  6. ATENOLOL [Concomitant]

REACTIONS (5)
  - BLOOD GLUCOSE INCREASED [None]
  - DRUG INEFFECTIVE [None]
  - FATIGUE [None]
  - HYPERTENSION [None]
  - VISUAL IMPAIRMENT [None]
